FAERS Safety Report 9671895 (Version 1)
Quarter: 2013Q4

REPORT INFORMATION
  Report Type: Spontaneous
  Country: US (occurrence: None)
  Receive Date: 20131105
  Receipt Date: 20131105
  Transmission Date: 20140711
  Serious: Yes (Hospitalization)
  Sender: FDA-Public Use
  Company Number: None

PATIENT
  Age: 60 Year
  Sex: Female

DRUGS (6)
  1. NAPROXEN [Suspect]
     Indication: PAIN
     Dosage: 1 PILL, QD, ORAL
     Route: 048
  2. ISOSORBIDE MONOITRATE [Concomitant]
  3. LOSARTAN [Concomitant]
  4. NIFEDIPINE [Concomitant]
  5. PRAVASTATIN [Concomitant]
  6. SPIRONOLACTONE [Concomitant]

REACTIONS (2)
  - Platelet count decreased [None]
  - Wrong drug administered [None]
